FAERS Safety Report 7746717-2 (Version None)
Quarter: 2011Q3

REPORT INFORMATION
  Report Type: 
  Country: None (occurrence: None)
  Receive Date: 20110908
  Receipt Date: 20110826
  Transmission Date: 20111222
  Serious: Yes (Death, Life-Threatening, Hospitalization)
  Sender: FDA-Public Use
  Company Number: 201108IM002077

PATIENT
  Age: 10 Year
  Sex: Male
  Weight: 26 kg

DRUGS (1)
  1. INTERFERON GAMMA NOS [Suspect]
     Indication: CHRONIC GRANULOMATOUS DISEASE
     Dosage: 100 MCG/0.5 ML, SUBCUTANEOUS
     Route: 058
     Dates: start: 20050101, end: 20110805

REACTIONS (5)
  - PURULENCE [None]
  - SEPSIS [None]
  - PERICARDITIS [None]
  - SEPTIC SHOCK [None]
  - ASPERGILLOSIS [None]
